FAERS Safety Report 9069394 (Version 5)
Quarter: 2014Q1

REPORT INFORMATION
  Report Type: Report from Study
  Country: US (occurrence: US)
  Receive Date: 20130215
  Receipt Date: 20140313
  Transmission Date: 20141002
  Serious: Yes (Hospitalization, Other)
  Sender: FDA-Public Use
  Company Number: US-US-EMD SERONO, INC.-7192727

PATIENT
  Age: 62 Year
  Sex: Female

DRUGS (3)
  1. REBIF [Suspect]
     Indication: MULTIPLE SCLEROSIS
     Route: 058
     Dates: start: 20080204, end: 201301
  2. REBIF [Suspect]
     Route: 058
     Dates: start: 20130515
  3. REBIF [Suspect]
     Route: 058

REACTIONS (17)
  - Blood pressure fluctuation [Not Recovered/Not Resolved]
  - Transient ischaemic attack [Not Recovered/Not Resolved]
  - Intracardiac thrombus [Unknown]
  - Cardiac septal defect [Unknown]
  - Loss of consciousness [Unknown]
  - Blindness transient [Recovered/Resolved]
  - Cerebral vasoconstriction [Unknown]
  - Fall [Recovered/Resolved]
  - Head injury [Unknown]
  - Confusional state [Recovered/Resolved]
  - Dehydration [Unknown]
  - Breast mass [Not Recovered/Not Resolved]
  - Faecal incontinence [Not Recovered/Not Resolved]
  - Injection site pain [Not Recovered/Not Resolved]
  - Injection site mass [Not Recovered/Not Resolved]
  - Injection site induration [Not Recovered/Not Resolved]
  - Injection site erythema [Not Recovered/Not Resolved]
